FAERS Safety Report 22104102 (Version 1)
Quarter: 2023Q1

REPORT INFORMATION
  Report Type: Spontaneous
  Country: US (occurrence: None)
  Receive Date: 20230315
  Receipt Date: 20230315
  Transmission Date: 20230418
  Serious: Yes (Disabling)
  Sender: FDA-Public Use
  Company Number: None

PATIENT
  Age: 68 Year
  Sex: Female
  Weight: 65.77 kg

DRUGS (10)
  1. CIPROFLOXACIN [Suspect]
     Active Substance: CIPROFLOXACIN
     Indication: Onychomycosis
     Dosage: OTHER QUANTITY : 1 PILL;?FREQUENCY : EVERY 12 HOURS;?
  2. LEVOTHYROXINE [Concomitant]
     Active Substance: LEVOTHYROXINE
  3. DALFAMPERDINE [Concomitant]
  4. BACLOFEN [Concomitant]
     Active Substance: BACLOFEN
  5. SIMVASTATIN [Concomitant]
     Active Substance: SIMVASTATIN
  6. TRAMADOL [Concomitant]
     Active Substance: TRAMADOL
  7. PRESERVISION A REDS [Concomitant]
  8. CVS WOMAN^S 50+ ADVANCE MULTIVITAMINS [Concomitant]
  9. SELENEX GSN [Concomitant]
  10. IBUPROFEN [Concomitant]
     Active Substance: IBUPROFEN

REACTIONS (5)
  - Adverse drug reaction [None]
  - Tendon rupture [None]
  - Tendon disorder [None]
  - Neuropathy peripheral [None]
  - Nervous system disorder [None]

NARRATIVE: CASE EVENT DATE: 20230311
